FAERS Safety Report 20903334 (Version 1)
Quarter: 2022Q2

REPORT INFORMATION
  Report Type: Spontaneous
  Country: US (occurrence: None)
  Receive Date: 20220601
  Receipt Date: 20220601
  Transmission Date: 20220721
  Serious: No
  Sender: FDA-Public Use
  Company Number: 2022A202243

PATIENT
  Age: 70 Year
  Sex: Male

DRUGS (1)
  1. NEXIUM [Suspect]
     Active Substance: ESOMEPRAZOLE MAGNESIUM
     Indication: Gastrooesophageal reflux disease
     Route: 065
     Dates: start: 2002

REACTIONS (6)
  - Bone density abnormal [Unknown]
  - Blood cholesterol increased [Unknown]
  - Incorrect product administration duration [Unknown]
  - Multiple use of single-use product [Unknown]
  - Multiple drug therapy [Unknown]
  - Vascular graft [Unknown]

NARRATIVE: CASE EVENT DATE: 20020101
